FAERS Safety Report 19221431 (Version 1)
Quarter: 2021Q2

REPORT INFORMATION
  Report Type: Spontaneous
  Country: US (occurrence: US)
  Receive Date: 20210505
  Receipt Date: 20210505
  Transmission Date: 20210717
  Serious: Yes (Hospitalization, Other)
  Sender: FDA-Public Use
  Company Number: None

PATIENT
  Age: 67 Year
  Sex: Male
  Weight: 96.5 kg

DRUGS (1)
  1. BAMLANIVIMAB?ETESEVIMAB [Suspect]
     Active Substance: BAMLANIVIMAB\ETESEVIMAB
     Indication: COVID-19
     Dates: start: 20210419, end: 20210419

REACTIONS (2)
  - Blood pressure systolic decreased [None]
  - Bradycardia [None]

NARRATIVE: CASE EVENT DATE: 20210419
